FAERS Safety Report 19589302 (Version 1)
Quarter: 2021Q3

REPORT INFORMATION
  Report Type: Spontaneous
  Country: US (occurrence: US)
  Receive Date: 20210721
  Receipt Date: 20210721
  Transmission Date: 20211014
  Serious: Yes (Hospitalization)
  Sender: FDA-Public Use
  Company Number: US-IBSA PHARMA INC.-2021CHE000045

PATIENT
  Sex: Male
  Weight: 59.41 kg

DRUGS (3)
  1. COSENTYX [Suspect]
     Active Substance: SECUKINUMAB
     Indication: PSORIATIC ARTHROPATHY
     Dosage: 150 MG, ONCE A MONTH
     Route: 058
     Dates: start: 201605
  2. LIOTHYRONINE [Concomitant]
     Active Substance: LIOTHYRONINE
     Indication: PRODUCT USED FOR UNKNOWN INDICATION
     Dosage: 5 ?G, QD
     Route: 048
     Dates: start: 20080101
  3. LEVOTHYROXINE SODIUM. [Suspect]
     Active Substance: LEVOTHYROXINE SODIUM
     Indication: PRODUCT USED FOR UNKNOWN INDICATION
     Dosage: 175 ?G, QD
     Route: 048
     Dates: start: 20080101

REACTIONS (3)
  - Hypercalcaemia [Recovered/Resolved]
  - Acute kidney injury [Recovered/Resolved]
  - Hypertension [Recovered/Resolved]

NARRATIVE: CASE EVENT DATE: 20201127
